FAERS Safety Report 5914458-X (Version None)
Quarter: 2008Q4

REPORT INFORMATION
  Report Type: 
  Country: None (occurrence: None)
  Receive Date: 20081009
  Receipt Date: 20081003
  Transmission Date: 20090506
  Serious: Yes (Death)
  Sender: FDA-Public Use
  Company Number: US-GILEAD-2008-0018402

PATIENT
  Sex: Male
  Weight: 94.432 kg

DRUGS (5)
  1. LETAIRIS [Suspect]
     Indication: PULMONARY ARTERIAL HYPERTENSION
     Route: 048
     Dates: start: 20080624, end: 20081001
  2. FEXOFENADINE HCL [Concomitant]
  3. TYLENOL (CAPLET) [Concomitant]
  4. ZOLPIDEM TARTRATE [Concomitant]
  5. CENTRUM [Concomitant]

REACTIONS (1)
  - DEATH [None]
